FAERS Safety Report 12932005 (Version 2)
Quarter: 2016Q4

REPORT INFORMATION
  Report Type: Spontaneous
  Country: CN (occurrence: CN)
  Receive Date: 20161111
  Receipt Date: 20161111
  Transmission Date: 20170207
  Serious: Yes (Hospitalization)
  Sender: FDA-Public Use
  Company Number: PHHY2016CN151634

PATIENT
  Age: 63 Year
  Sex: Female
  Weight: 68 kg

DRUGS (12)
  1. CLARITHROMYCIN. [Interacting]
     Active Substance: CLARITHROMYCIN
     Indication: PRODUCT USED FOR UNKNOWN INDICATION
     Dosage: 0.25 G, BID
     Route: 065
     Dates: start: 20140816
  2. BICYCLOL [Concomitant]
     Active Substance: BICYCLOL
     Indication: PROPHYLAXIS
     Route: 065
  3. CICLOSPORIN [Suspect]
     Active Substance: CYCLOSPORINE
     Indication: APLASTIC ANAEMIA
     Dosage: 100 MG, Q12H
     Route: 065
  4. CLARITHROMYCIN. [Interacting]
     Active Substance: CLARITHROMYCIN
     Dosage: 0.25 G, QD
     Route: 065
     Dates: start: 20140816
  5. RUTIN [Concomitant]
     Active Substance: RUTIN
     Indication: HAEMORRHAGE
     Route: 065
  6. CICLOSPORIN [Interacting]
     Active Substance: CYCLOSPORINE
     Dosage: 75 MG, Q12H
     Route: 065
  7. CICLOSPORIN [Interacting]
     Active Substance: CYCLOSPORINE
     Dosage: 75 MG, Q12H
     Route: 065
  8. CICLOSPORIN [Interacting]
     Active Substance: CYCLOSPORINE
     Dosage: 100 MG, Q12H
     Route: 065
  9. IRBESARTAN. [Concomitant]
     Active Substance: IRBESARTAN
     Indication: HYPERTENSION
     Route: 065
  10. CHLORHEXIDINE [Concomitant]
     Active Substance: CHLORHEXIDINE
     Indication: INFECTION PROPHYLAXIS
     Route: 065
  11. NYSTATIN. [Concomitant]
     Active Substance: NYSTATIN
     Indication: INFECTION PROPHYLAXIS
     Route: 065
  12. CLARITHROMYCIN. [Interacting]
     Active Substance: CLARITHROMYCIN
     Dosage: 0.25 G, BID
     Route: 065
     Dates: start: 20140816

REACTIONS (5)
  - Incorrect dose administered [Unknown]
  - Product use issue [Unknown]
  - Drug level below therapeutic [Recovered/Resolved]
  - Drug level above therapeutic [Recovered/Resolved]
  - Drug interaction [Unknown]

NARRATIVE: CASE EVENT DATE: 20140903
